FAERS Safety Report 24371953 (Version 1)
Quarter: 2024Q3

REPORT INFORMATION
  Report Type: Spontaneous
  Country: IL (occurrence: IL)
  Receive Date: 20240927
  Receipt Date: 20240927
  Transmission Date: 20241017
  Serious: Yes (Other)
  Sender: QUAGEN PHARMACEUTICALS
  Company Number: IL-QUAGEN-2024QUALIT00301

PATIENT
  Age: 6 Year
  Sex: Male

DRUGS (2)
  1. TRIAMCINOLONE ACETONIDE [Suspect]
     Active Substance: TRIAMCINOLONE ACETONIDE
     Indication: Vernal keratoconjunctivitis
     Dosage: SUPRATARSAL
     Route: 061
  2. CYCLOSPORINE [Concomitant]
     Active Substance: CYCLOSPORINE
     Indication: Vernal keratoconjunctivitis
     Route: 061

REACTIONS (2)
  - Glaucoma [Recovering/Resolving]
  - Product use in unapproved indication [Unknown]
